FAERS Safety Report 21375654 (Version 3)
Quarter: 2022Q4

REPORT INFORMATION
  Report Type: Spontaneous
  Country: IT (occurrence: IT)
  Receive Date: 20220926
  Receipt Date: 20221104
  Transmission Date: 20230113
  Serious: Yes (Life-Threatening, Other)
  Sender: FDA-Public Use
  Company Number: IT-drreddys-LIT/ITL/22/0154925

PATIENT
  Age: 26 Day
  Sex: Male

DRUGS (7)
  1. AZACITIDINE [Suspect]
     Active Substance: AZACITIDINE
     Indication: Acute lymphocytic leukaemia
     Dosage: EVERY 21 DAYS FOR 4 CYCLES?55 MG/M2 FOR 5 DAYS
  2. AZACITIDINE [Suspect]
     Active Substance: AZACITIDINE
     Indication: Acute lymphocytic leukaemia recurrent
     Dosage: EVERY 21 DAYS FOR 4 CYCLES?55 MG/M2 FOR 7 DAYS
  3. AZACITIDINE [Suspect]
     Active Substance: AZACITIDINE
     Indication: KMT2A gene mutation
     Dosage: EVERY 21 DAYS FOR 4 CYCLES?75 MG/M2 FOR 5 DAYS
  4. AZACITIDINE [Suspect]
     Active Substance: AZACITIDINE
     Dosage: EVERY 21 DAYS FOR 4 CYCLES?75 MG/M2 FOR 7 DAYS
  5. AZACITIDINE [Suspect]
     Active Substance: AZACITIDINE
     Dosage: EVERY 21 DAYS FOR 4 CYCLES?75 MG/M2 FOR 5 DAYS
  6. AZACITIDINE [Suspect]
     Active Substance: AZACITIDINE
     Dosage: 40 MG/M2, CYCLIC, MAINTENANCE 3 CYCLES
  7. PREDNISONE [Concomitant]
     Active Substance: PREDNISONE
     Indication: Acute lymphocytic leukaemia
     Dosage: PREDNISONE WAS GIVEN WITH EACH CYCLE OF AZACITIDINE

REACTIONS (6)
  - Drug ineffective [Unknown]
  - Cytopenia [Unknown]
  - Gastrointestinal toxicity [Unknown]
  - Disease recurrence [Unknown]
  - Off label use [Unknown]
  - Off label use [Unknown]
